FAERS Safety Report 8094980-3 (Version None)
Quarter: 2012Q1

REPORT INFORMATION
  Report Type: 
  Country: None (occurrence: None)
  Receive Date: 20120131
  Receipt Date: 20120112
  Transmission Date: 20120608
  Serious: No
  Sender: FDA-Public Use
  Company Number: US-ABBOTT-12P-163-0892717-00

PATIENT
  Sex: Female
  Weight: 59.02 kg

DRUGS (1)
  1. CREON [Suspect]
     Indication: IMPAIRED GASTRIC EMPTYING
     Dates: start: 20110109

REACTIONS (10)
  - AGITATION [None]
  - ABDOMINAL DISTENSION [None]
  - IMPAIRED GASTRIC EMPTYING [None]
  - ABDOMINAL DISCOMFORT [None]
  - CHILLS [None]
  - DIARRHOEA [None]
  - HEADACHE [None]
  - OFF LABEL USE [None]
  - ANXIETY [None]
  - NAUSEA [None]
